FAERS Safety Report 5044025-4 (Version None)
Quarter: 2006Q2

REPORT INFORMATION
  Report Type: 
  Country: None (occurrence: None)
  Receive Date: 20060601
  Receipt Date: 20060417
  Transmission Date: 20061013
  Serious: No
  Sender: FDA-Public Use
  Company Number: 2006PV007449

PATIENT
  Sex: Male

DRUGS (6)
  1. BYETTA [Suspect]
     Indication: DIABETES MELLITUS NON-INSULIN-DEPENDENT
     Dosage: 5 MCG;BID;SC
     Route: 058
     Dates: start: 20060103, end: 20060119
  2. GENATROPINE [Concomitant]
  3. AMARYL [Concomitant]
  4. GLUCOPHAGE [Concomitant]
  5. VICODIN [Concomitant]
  6. MS CONTIN [Concomitant]

REACTIONS (6)
  - DYSPNOEA [None]
  - NASAL DRYNESS [None]
  - NERVOUSNESS [None]
  - PAINFUL RESPIRATION [None]
  - PARANASAL SINUS DISCOMFORT [None]
  - SINUS CONGESTION [None]
